FAERS Safety Report 6939574-5 (Version None)
Quarter: 2010Q3

REPORT INFORMATION
  Report Type: 
  Country: None (occurrence: None)
  Receive Date: 20100820
  Receipt Date: 20100804
  Transmission Date: 20110219
  Serious: Yes (Hospitalization)
  Sender: FDA-Public Use
  Company Number: 1000015709

PATIENT
  Age: 85 Year
  Sex: Male
  Weight: 53 kg

DRUGS (5)
  1. CITALOPRAM HYDROBROMIDE [Suspect]
     Indication: DEPRESSION
     Dosage: 20 MG (20 MG, 1 IN 1 D), ORAL
     Route: 048
     Dates: start: 20100628, end: 20100706
  2. NULYTELY [Concomitant]
  3. LANSOPRAZOLE [Concomitant]
  4. ACETAMINOPHEN [Concomitant]
  5. TEMAZEPAM [Concomitant]

REACTIONS (4)
  - BLOOD SODIUM DECREASED [None]
  - BURSITIS [None]
  - CONFUSIONAL STATE [None]
  - FALL [None]
